FAERS Safety Report 5857653-0 (Version None)
Quarter: 2008Q3

REPORT INFORMATION
  Report Type: 
  Country: None (occurrence: None)
  Receive Date: 20080825
  Receipt Date: 20080812
  Transmission Date: 20090109
  Serious: Yes (Hospitalization)
  Sender: FDA-Public Use
  Company Number: 2008BI021222

PATIENT
  Sex: Female

DRUGS (2)
  1. AVONEX [Suspect]
     Dosage: IM
     Route: 030
     Dates: end: 20080701
  2. STEROID (NOS) [Concomitant]

REACTIONS (5)
  - BLOOD SODIUM DECREASED [None]
  - FALL [None]
  - FLUID RETENTION [None]
  - HEAD INJURY [None]
  - JOINT INJURY [None]
